FAERS Safety Report 23626534 (Version 1)
Quarter: 2024Q1

REPORT INFORMATION
  Report Type: Spontaneous
  Country: US (occurrence: US)
  Receive Date: 20240313
  Receipt Date: 20240313
  Transmission Date: 20240409
  Serious: No
  Sender: FDA-Public Use
  Company Number: US-APOTEX-2024AP001979

PATIENT

DRUGS (1)
  1. BRIMONIDINE [Suspect]
     Active Substance: BRIMONIDINE TARTRATE
     Indication: Product used for unknown indication
     Dosage: UNK, BID

REACTIONS (4)
  - Extra dose administered [Unknown]
  - Product container issue [Unknown]
  - Device difficult to use [Unknown]
  - Product availability issue [Unknown]
